FAERS Safety Report 9197573 (Version 5)
Quarter: 2013Q4

REPORT INFORMATION
  Report Type: Report from Study
  Country: JP (occurrence: JP)
  Receive Date: 20130328
  Receipt Date: 20131021
  Transmission Date: 20140711
  Serious: Yes (Hospitalization)
  Sender: FDA-Public Use
  Company Number: JP-GLAXOSMITHKLINE-B0877694A

PATIENT
  Age: 24 Year
  Sex: Male
  Weight: 47 kg

DRUGS (1)
  1. VOTRIENT 200MG [Suspect]
     Indication: DESMOPLASTIC SMALL ROUND CELL TUMOUR
     Dosage: 800MG PER DAY
     Route: 048
     Dates: start: 20130130, end: 20130130

REACTIONS (1)
  - Intestinal obstruction [Recovered/Resolved with Sequelae]
